FAERS Safety Report 11458627 (Version 1)
Quarter: 2015Q3

REPORT INFORMATION
  Report Type: Spontaneous
  Country: US (occurrence: US)
  Receive Date: 20150904
  Receipt Date: 20150904
  Transmission Date: 20151125
  Serious: Yes (Death, Hospitalization, Other)
  Sender: FDA-Public Use
  Company Number: US-TARO-2015TAR00821

PATIENT
  Age: 73 Year
  Sex: Female

DRUGS (7)
  1. WARFARIN SODIUM TABLETS USP 1MG [Suspect]
     Active Substance: WARFARIN SODIUM
     Indication: INTRACARDIAC THROMBUS
     Dosage: 1 MG, 1X/DAY
     Route: 048
     Dates: start: 201311, end: 20141004
  2. LISINOPRIL. [Concomitant]
     Active Substance: LISINOPRIL
     Dosage: UNK
     Dates: end: 20141004
  3. WARFARIN SODIUM TABLETS USP 4MG [Suspect]
     Active Substance: WARFARIN SODIUM
     Indication: INTRACARDIAC THROMBUS
     Dosage: 4 MG, 1X/DAY
     Route: 048
     Dates: start: 201311, end: 20141004
  4. INSULIN [Concomitant]
     Active Substance: INSULIN NOS
     Dosage: UNK
     Dates: end: 20141004
  5. ASPIRIN. [Concomitant]
     Active Substance: ASPIRIN
     Dosage: UNK
     Dates: end: 20141004
  6. LASIX [Concomitant]
     Active Substance: FUROSEMIDE
     Dosage: UNK
     Dates: end: 20141004
  7. SIMVASTATIN. [Concomitant]
     Active Substance: SIMVASTATIN
     Dosage: UNK
     Dates: end: 20141004

REACTIONS (11)
  - Haemorrhagic stroke [Fatal]
  - Loss of consciousness [Not Recovered/Not Resolved]
  - Mobility decreased [Not Recovered/Not Resolved]
  - Asthenia [Not Recovered/Not Resolved]
  - Muscle tightness [Unknown]
  - Eye contusion [Unknown]
  - Laceration [Unknown]
  - Cardiac failure congestive [Not Recovered/Not Resolved]
  - Contusion [Not Recovered/Not Resolved]
  - Vomiting [Unknown]
  - Headache [Unknown]

NARRATIVE: CASE EVENT DATE: 2014
